FAERS Safety Report 8120379-7 (Version None)
Quarter: 2012Q1

REPORT INFORMATION
  Report Type: 
  Country: None (occurrence: None)
  Receive Date: 20120207
  Receipt Date: 20120201
  Transmission Date: 20120608
  Serious: Yes (Other)
  Sender: FDA-Public Use
  Company Number: GB-GLAXOSMITHKLINE-B0778669A

PATIENT
  Age: 49 Year
  Sex: Female
  Weight: 94 kg

DRUGS (2)
  1. PAROXETINE [Suspect]
     Indication: DEPRESSION
     Route: 048
     Dates: start: 20120102, end: 20120107
  2. SERTRALINE HYDROCHLORIDE [Concomitant]
     Route: 048

REACTIONS (4)
  - HYPERHIDROSIS [None]
  - SYNCOPE [None]
  - LIP SWELLING [None]
  - COUGH [None]
